FAERS Safety Report 15387761 (Version 2)
Quarter: 2019Q1

REPORT INFORMATION
  Report Type: Spontaneous
  Country: US (occurrence: US)
  Receive Date: 20180914
  Receipt Date: 20190227
  Transmission Date: 20190417
  Serious: No
  Sender: FDA-Public Use
  Company Number: US-SHIRE-US201835437

PATIENT
  Sex: Male

DRUGS (1)
  1. XIIDRA [Suspect]
     Active Substance: LIFITEGRAST
     Indication: DRY EYE
     Route: 047

REACTIONS (6)
  - Drug ineffective [Unknown]
  - Vision blurred [Not Recovered/Not Resolved]
  - Product storage error [Unknown]
  - Instillation site reaction [Unknown]
  - Instillation site pain [Not Recovered/Not Resolved]
  - Instillation site pain [Unknown]
